FAERS Safety Report 5709120-2 (Version None)
Quarter: 2008Q2

REPORT INFORMATION
  Report Type: 
  Country: None (occurrence: None)
  Receive Date: 20080416
  Receipt Date: 20080416
  Transmission Date: 20081010
  Serious: Yes (Death)
  Sender: FDA-Public Use
  Company Number: None

PATIENT
  Sex: Male

DRUGS (4)
  1. REVLIMID [Suspect]
     Indication: MULTIPLE MYELOMA
     Dosage: 25MG EVERY OTHER DAY PO
     Route: 048
  2. REVLIMID [Suspect]
     Indication: MULTIPLE MYELOMA
     Dosage: 15MG QDAY TO QOD PO
     Route: 048
  3. DEXAMETHASONE TAB [Concomitant]
  4. WARFARIN SODIUM [Concomitant]

REACTIONS (5)
  - BALANCE DISORDER [None]
  - LEUKOPENIA [None]
  - PANCYTOPENIA [None]
  - PNEUMONIA [None]
  - VISUAL DISTURBANCE [None]
